FAERS Safety Report 6589577-8 (Version None)
Quarter: 2010Q1

REPORT INFORMATION
  Report Type: 
  Country: None (occurrence: None)
  Receive Date: 20100212
  Receipt Date: 20100122
  Transmission Date: 20100710
  Serious: Yes (Death)
  Sender: FDA-Public Use
  Company Number: 2010000286

PATIENT
  Age: 67 Year
  Sex: Male

DRUGS (7)
  1. ERLOTINIB HYDROCHLORIDE [Suspect]
     Indication: NON-SMALL CELL LUNG CANCER
     Dosage: (150 MG,QD),ORAL
     Route: 048
     Dates: start: 20091114
  2. GEMCITABINE [Suspect]
     Indication: NON-SMALL CELL LUNG CANCER
     Dosage: (1975 MG,2X PER MONTH), INTRAVENOUS
     Route: 042
     Dates: start: 20091031
  3. CARBOPLATIN [Suspect]
     Indication: NON-SMALL CELL LUNG CANCER
     Dosage: (486 MG, 1 X MONTH), INTRAVENOUS
     Route: 042
     Dates: start: 20091031
  4. CODEINE SUL TAB [Concomitant]
  5. ACETAMINOPHEN [Concomitant]
  6. NEURODEX (NEUROBION FOR INJECTION) [Concomitant]
  7. ONDANSETRON [Concomitant]

REACTIONS (4)
  - HAEMOPTYSIS [None]
  - LOSS OF CONSCIOUSNESS [None]
  - MELAENA [None]
  - SUDDEN DEATH [None]
